FAERS Safety Report 7328930-1 (Version None)
Quarter: 2011Q1

REPORT INFORMATION
  Report Type: 
  Country: None (occurrence: None)
  Receive Date: 20110303
  Receipt Date: 20110222
  Transmission Date: 20110831
  Serious: Yes (Other)
  Sender: FDA-Public Use
  Company Number: JP-ASTRAZENECA-2011SE08220

PATIENT
  Age: 72 Year
  Sex: Female

DRUGS (3)
  1. MEVALOTIN [Concomitant]
     Route: 048
  2. ASPIRIN [Concomitant]
     Route: 048
  3. CANDESARTAN CILEXETIL AND HYDROCHLOROTHIAZIDE [Suspect]
     Route: 048
     Dates: start: 20110124

REACTIONS (1)
  - MUSCLE SPASMS [None]
